FAERS Safety Report 5063666-1 (Version None)
Quarter: 2006Q3

REPORT INFORMATION
  Report Type: 
  Country: None (occurrence: None)
  Receive Date: 20060724
  Receipt Date: 20060531
  Transmission Date: 20061208
  Serious: Yes (Hospitalization)
  Sender: FDA-Public Use
  Company Number: TCI2006A01888

PATIENT

DRUGS (1)
  1. TAKEPRON (LANSOPRAZOLE) (PREPARATION FOR ORAL USE(NOS)) [Suspect]
     Indication: DRUG USE FOR UNKNOWN INDICATION
     Dosage: PER ORAL
     Route: 048

REACTIONS (2)
  - AUTOIMMUNE DISORDER [None]
  - ENCEPHALOPATHY [None]
